FAERS Safety Report 9123502 (Version 1)
Quarter: 2013Q1

REPORT INFORMATION
  Report Type: Spontaneous
  Country: US (occurrence: None)
  Receive Date: 20130131
  Receipt Date: 20130131
  Transmission Date: 20140127
  Serious: Yes (Life-Threatening)
  Sender: FDA-Public Use
  Company Number: 001462072A

PATIENT
  Age: 48 Year
  Sex: Female

DRUGS (2)
  1. MEANINGFUL BEAUTY ANTIOXIDANT DAY CREME SPF 20 [Suspect]
     Dosage: ONCE DAILY DERMAL
     Dates: start: 20121215, end: 20130105
  2. HYDROCODONE [Concomitant]

REACTIONS (3)
  - Rash erythematous [None]
  - Dry skin [None]
  - Skin exfoliation [None]
